FAERS Safety Report 19531580 (Version 3)
Quarter: 2021Q3

REPORT INFORMATION
  Report Type: Spontaneous
  Country: JP (occurrence: JP)
  Receive Date: 20210713
  Receipt Date: 20210923
  Transmission Date: 20211014
  Serious: Yes (Death, Hospitalization, Other)
  Sender: FDA-Public Use
  Company Number: JP-PFIZER INC-2021859241

PATIENT
  Age: 78 Year
  Sex: Female

DRUGS (7)
  1. BRAFTOVI [Suspect]
     Active Substance: ENCORAFENIB
     Dosage: UNK
     Route: 048
     Dates: start: 20210719
  2. ERBITUX [Concomitant]
     Active Substance: CETUXIMAB
     Dosage: UNK
     Route: 065
     Dates: start: 2021
  3. BRAFTOVI [Suspect]
     Active Substance: ENCORAFENIB
     Indication: COLON CANCER
     Dosage: UNK
     Route: 048
     Dates: start: 20210614, end: 20210702
  4. MEKTOVI [Suspect]
     Active Substance: BINIMETINIB
     Indication: COLON CANCER
     Dosage: UNK
     Route: 048
     Dates: start: 20210614, end: 20210702
  5. ERBITUX [Concomitant]
     Active Substance: CETUXIMAB
     Indication: COLON CANCER
     Dosage: UNK
     Route: 065
     Dates: start: 20210614, end: 2021
  6. MEKTOVI [Suspect]
     Active Substance: BINIMETINIB
     Dosage: UNK
     Route: 048
     Dates: start: 20210719
  7. VONOSAP [Concomitant]
     Active Substance: AMOXICILLIN\CLARITHROMYCIN\VONOPRAZAN FUMURATE
     Dosage: UNK
     Route: 065

REACTIONS (6)
  - Diarrhoea [Recovering/Resolving]
  - Tumour lysis syndrome [Unknown]
  - Neoplasm progression [Fatal]
  - Platelet count decreased [Recovering/Resolving]
  - Decreased appetite [Unknown]
  - Tumour marker decreased [Unknown]

NARRATIVE: CASE EVENT DATE: 20210619
